FAERS Safety Report 4884636-X (Version None)
Quarter: 2006Q1

REPORT INFORMATION
  Report Type: 
  Country: None (occurrence: None)
  Receive Date: 20060119
  Receipt Date: 20051221
  Transmission Date: 20060701
  Serious: Yes (Hospitalization, Other)
  Sender: FDA-Public Use
  Company Number: JP-SP-2005-02853

PATIENT
  Age: 84 Year
  Sex: Male

DRUGS (5)
  1. IMMUCYST [Suspect]
     Indication: BLADDER CANCER
     Route: 043
     Dates: start: 20050507, end: 20050611
  2. IMMUCYST [Suspect]
     Route: 043
     Dates: start: 20050507, end: 20050611
  3. CEFCAPENE PIVOXIL HYDROCHLORIDE [Concomitant]
     Dates: start: 20050421, end: 20050610
  4. LEVOFLOXACIN [Concomitant]
     Dosage: 3 TABS, T.I.D
     Dates: start: 20050611, end: 20050622
  5. MINOCYCLINE HYDROCHLORIDE [Concomitant]
     Dosage: 200 MG, B.I.D
     Dates: start: 20050611

REACTIONS (3)
  - BLADDER SQUAMOUS CELL CARCINOMA STAGE UNSPECIFIED [None]
  - PROSTATIC ABSCESS [None]
  - PYURIA [None]
